FAERS Safety Report 6369672-9 (Version None)
Quarter: 2009Q3

REPORT INFORMATION
  Report Type: 
  Country: None (occurrence: None)
  Receive Date: 20090918
  Receipt Date: 20090904
  Transmission Date: 20100115
  Serious: Yes (Other)
  Sender: FDA-Public Use
  Company Number: JPI-P-008479

PATIENT

DRUGS (8)
  1. XYREM [Suspect]
     Indication: DRUG USE FOR UNKNOWN INDICATION
     Dosage: SEE IMAGE
     Route: 048
     Dates: start: 20090801, end: 20090801
  2. XYREM [Suspect]
     Indication: DRUG USE FOR UNKNOWN INDICATION
     Dosage: SEE IMAGE
     Route: 048
     Dates: start: 20090801, end: 20090801
  3. XYREM [Suspect]
     Indication: DRUG USE FOR UNKNOWN INDICATION
     Dosage: SEE IMAGE
     Route: 048
     Dates: start: 20090801, end: 20090801
  4. XYREM [Suspect]
     Indication: DRUG USE FOR UNKNOWN INDICATION
     Dosage: SEE IMAGE
     Route: 048
     Dates: start: 20090901, end: 20090902
  5. DULOXETINE HYDROCHLORIDE [Concomitant]
  6. ESTROGEN [Concomitant]
  7. SITAGLIPTIN [Concomitant]
  8. CETIRIZINE HCL [Concomitant]

REACTIONS (12)
  - ARTHRALGIA [None]
  - DISORIENTATION [None]
  - FALL [None]
  - GRAND MAL CONVULSION [None]
  - MEMORY IMPAIRMENT [None]
  - MENTAL DISORDER [None]
  - MENTAL IMPAIRMENT [None]
  - OXYGEN SATURATION DECREASED [None]
  - PAIN IN EXTREMITY [None]
  - RETCHING [None]
  - SPEECH DISORDER [None]
  - VOMITING [None]
